FAERS Safety Report 15679743 (Version 2)
Quarter: 2018Q4

REPORT INFORMATION
  Report Type: Spontaneous
  Country: US (occurrence: US)
  Receive Date: 20181203
  Receipt Date: 20181205
  Transmission Date: 20190205
  Serious: Yes (Other)
  Sender: FDA-Public Use
  Company Number: US-SHIRE-US201846548

PATIENT
  Age: 40 Year
  Sex: Female

DRUGS (1)
  1. LIALDA [Suspect]
     Active Substance: MESALAMINE
     Indication: PRODUCT USED FOR UNKNOWN INDICATION
     Dosage: 1.2 G, 3X/DAY:TID
     Route: 065
     Dates: start: 20180921

REACTIONS (3)
  - Colitis [Unknown]
  - Rectal haemorrhage [Unknown]
  - Diarrhoea haemorrhagic [Unknown]
